FAERS Safety Report 23203707 (Version 2)
Quarter: 2023Q4

REPORT INFORMATION
  Report Type: Spontaneous
  Country: ES (occurrence: ES)
  Receive Date: 20231120
  Receipt Date: 20231130
  Transmission Date: 20240110
  Serious: Yes (Hospitalization)
  Sender: FDA-Public Use
  Company Number: ES-UCBSA-2023052307

PATIENT
  Sex: Female
  Weight: 29 kg

DRUGS (8)
  1. FINTEPLA [Suspect]
     Active Substance: FENFLURAMINE
     Indication: Lennox-Gastaut syndrome
     Dosage: 6.6 MG/12 HOURS, 0.25 MG/KG TWICE A DAY
     Dates: start: 20230718, end: 2023
  2. FINTEPLA [Suspect]
     Active Substance: FENFLURAMINE
     Dosage: 2 MILLILITER, 2X/DAY (BID)
     Dates: start: 202309, end: 2023
  3. FINTEPLA [Suspect]
     Active Substance: FENFLURAMINE
     Dosage: 0.5 MILLILITER, 2X/DAY (BID)
     Dates: start: 202310, end: 20231004
  4. ZONISAMIDE [Concomitant]
     Active Substance: ZONISAMIDE
     Indication: Lennox-Gastaut syndrome
     Dosage: 175 MILLIGRAM, 2X/DAY (BID)
     Dates: start: 202309
  5. CANNABIDIOL [Concomitant]
     Active Substance: CANNABIDIOL
     Indication: Product used for unknown indication
     Dosage: UNK
     Dates: start: 202309
  6. CLOBAZAM [Concomitant]
     Active Substance: CLOBAZAM
     Indication: Lennox-Gastaut syndrome
     Dosage: 10 MILLIGRAM, ONCE DAILY (QD)
     Dates: start: 202309
  7. VALPROIC ACID [Concomitant]
     Active Substance: VALPROIC ACID
     Indication: Lennox-Gastaut syndrome
     Dosage: 300 MILLIGRAM, 2X/DAY (BID)
     Dates: start: 202310
  8. VALPROIC ACID [Concomitant]
     Active Substance: VALPROIC ACID
     Dosage: 200 MILLIGRAM, 2X/DAY (BID)

REACTIONS (6)
  - Transaminases decreased [Recovered/Resolved]
  - Decreased appetite [Recovered/Resolved]
  - Somnolence [Recovered/Resolved]
  - Vomiting [Unknown]
  - Weight decreased [Unknown]
  - Drug intolerance [Unknown]

NARRATIVE: CASE EVENT DATE: 20230101
